FAERS Safety Report 13526375 (Version 1)
Quarter: 2017Q2

REPORT INFORMATION
  Report Type: Other
  Country: US (occurrence: US)
  Receive Date: 20170509
  Receipt Date: 20170509
  Transmission Date: 20170830
  Serious: Yes (Other)
  Sender: FDA-Public Use
  Company Number: US-ORCHID HEALTHCARE-2020437

PATIENT
  Age: 67 Year
  Sex: Male

DRUGS (3)
  1. LEVETIRACETAM. [Suspect]
     Active Substance: LEVETIRACETAM
     Indication: EVIDENCE BASED TREATMENT
     Route: 042
  2. LACOSAMIDE. [Suspect]
     Active Substance: LACOSAMIDE
     Route: 065
  3. LORAZEPAM. [Suspect]
     Active Substance: LORAZEPAM
     Route: 042

REACTIONS (1)
  - Status epilepticus [Recovered/Resolved]
